FAERS Safety Report 9278368 (Version 2)
Quarter: 2013Q2

REPORT INFORMATION
  Report Type: Report from Study
  Country: US (occurrence: US)
  Receive Date: 20130508
  Receipt Date: 20130621
  Transmission Date: 20140414
  Serious: Yes (Hospitalization)
  Sender: FDA-Public Use
  Company Number: US-PFIZER INC-2013140073

PATIENT
  Age: 70 Year
  Sex: Male
  Weight: 124 kg

DRUGS (7)
  1. BLINDED CELECOXIB [Suspect]
     Indication: ADENOCARCINOMA OF COLON
     Dosage: 400 MG, 1X/DAY
     Route: 048
     Dates: start: 20130220
  2. BLINDED PLACEBO [Suspect]
     Indication: ADENOCARCINOMA OF COLON
     Dosage: 400 MG, 1X/DAY
     Route: 048
     Dates: start: 20130220
  3. FLUOROURACIL [Suspect]
     Indication: ADENOCARCINOMA OF COLON
     Dosage: 400 MG/M2, CYCLIC, IVP
     Route: 042
     Dates: start: 20130220
  4. FLUOROURACIL [Suspect]
     Dosage: 2400 MG/M2, CYCLIC
     Route: 042
     Dates: start: 20130220
  5. ELOXATIN [Suspect]
     Indication: ADENOCARCINOMA OF COLON
     Dosage: 85 MG/M2, CYCLIC
     Route: 042
     Dates: start: 20130220
  6. LEUCOVORIN CALCIUM [Suspect]
     Indication: ADENOCARCINOMA OF COLON
     Dosage: 400 MG/M2, CYCLIC
     Route: 042
     Dates: start: 20130220
  7. CEFAZOLIN [Concomitant]

REACTIONS (1)
  - Skin infection [Not Recovered/Not Resolved]
